FAERS Safety Report 17421509 (Version 2)
Quarter: 2022Q1

REPORT INFORMATION
  Report Type: Report from Study
  Country: ES (occurrence: ES)
  Receive Date: 20200214
  Receipt Date: 20220114
  Transmission Date: 20220423
  Serious: Yes (Hospitalization)
  Sender: FDA-Public Use
  Company Number: ES-SA-2020SA011886

PATIENT
  Age: 73 Year
  Sex: Male
  Weight: 81 kg

DRUGS (13)
  1. LEUCOVORIN CALCIUM [Suspect]
     Active Substance: LEUCOVORIN CALCIUM
     Indication: Colorectal cancer
     Dosage: 800 MG, CYCLIC (EVERY 2 WEEKS)
     Dates: start: 20191113, end: 20191113
  2. LEUCOVORIN CALCIUM [Suspect]
     Active Substance: LEUCOVORIN CALCIUM
     Dosage: 800 MG, CYCLIC (EVERY 2 WEEKS)
     Dates: start: 20200102
  3. IRINOTECAN HYDROCHLORIDE [Suspect]
     Active Substance: IRINOTECAN HYDROCHLORIDE
     Indication: Colorectal cancer
     Dosage: 360 MG, CYCLIC (EVERY 2 WEEKS)
     Route: 042
     Dates: start: 20191113, end: 20191113
  4. IRINOTECAN HYDROCHLORIDE [Suspect]
     Active Substance: IRINOTECAN HYDROCHLORIDE
     Dosage: 360 MG, CYCLIC (EVERY 2 WEEKS)
     Route: 042
     Dates: start: 20200102, end: 20200102
  5. IRINOTECAN HYDROCHLORIDE [Suspect]
     Active Substance: IRINOTECAN HYDROCHLORIDE
     Dosage: 720 MG
  6. AFLIBERCEPT [Suspect]
     Active Substance: AFLIBERCEPT
     Indication: Colorectal cancer
     Dosage: 356 MG, CYCLIC (EVERY 2 WEEKS)
     Route: 042
     Dates: start: 20191113, end: 20191113
  7. AFLIBERCEPT [Suspect]
     Active Substance: AFLIBERCEPT
     Dosage: 356 MG, CYCLIC (EVERY 2 WEEKS)
     Route: 042
     Dates: start: 20200102, end: 20200102
  8. AFLIBERCEPT [Suspect]
     Active Substance: AFLIBERCEPT
     Dosage: 712 MG
  9. FLUOROURACIL [Suspect]
     Active Substance: FLUOROURACIL
     Indication: Colorectal cancer
     Dosage: 4800 MG, CYCLIC (EVERY 2 WEEKS)
     Route: 042
     Dates: start: 20191113, end: 20191113
  10. FLUOROURACIL [Suspect]
     Active Substance: FLUOROURACIL
     Dosage: 800 MG, CYCLIC (EVERY 2 WEEKS)
     Route: 040
     Dates: start: 20191113, end: 20191113
  11. FLUOROURACIL [Suspect]
     Active Substance: FLUOROURACIL
     Dosage: 11200 MG CYCLIC (EVERY 2 WEEKS)
     Route: 042
     Dates: start: 20191113, end: 20191113
  12. FLUOROURACIL [Suspect]
     Active Substance: FLUOROURACIL
     Dosage: 800 MG, CYCLIC (EVERY 2 WEEKS)
     Route: 040
     Dates: start: 20200102, end: 20200102
  13. FLUOROURACIL [Suspect]
     Active Substance: FLUOROURACIL
     Dosage: 4800 MG, CYCLIC (EVERY 2 WEEKS)
     Route: 042
     Dates: start: 20200102

REACTIONS (1)
  - Oesophagitis [Recovered/Resolved]

NARRATIVE: CASE EVENT DATE: 20200113
